FAERS Safety Report 14177098 (Version 2)
Quarter: 2017Q4

REPORT INFORMATION
  Report Type: Spontaneous
  Country: US (occurrence: US)
  Receive Date: 20171110
  Receipt Date: 20171218
  Transmission Date: 20180321
  Serious: No
  Sender: FDA-Public Use
  Company Number: US-PFIZER INC-2017484369

PATIENT
  Age: 70 Year
  Sex: Male

DRUGS (5)
  1. TRAZODONE HYDROCHLORIDE. [Suspect]
     Active Substance: TRAZODONE HYDROCHLORIDE
     Dosage: UNK
  2. XANAX [Suspect]
     Active Substance: ALPRAZOLAM
     Dosage: UNK
  3. CODEINE SULFATE. [Suspect]
     Active Substance: CODEINE SULFATE
     Dosage: UNK
  4. IODINE. [Suspect]
     Active Substance: IODINE
     Dosage: UNK
  5. BIAXIN [Suspect]
     Active Substance: CLARITHROMYCIN
     Dosage: UNK

REACTIONS (1)
  - Drug hypersensitivity [Unknown]
